FAERS Safety Report 4614096-5 (Version None)
Quarter: 2005Q1

REPORT INFORMATION
  Report Type: 
  Country: None (occurrence: None)
  Receive Date: 20050315
  Receipt Date: 20050301
  Transmission Date: 20050727
  Serious: Yes (Hospitalization)
  Sender: FDA-Public Use
  Company Number: 212997

PATIENT
  Age: 66 Year

DRUGS (2)
  1. BEVACIZUMAB(BEVACIZUMAB) PWDR + SOLVENT,INFUSION SOLN, 100MG [Suspect]
     Indication: BREAST CANCER
     Dosage: 10 MG/KG, Q2W, INTRAVENOUS
     Route: 042
     Dates: start: 20041019
  2. DOCETAXEL (DOCETAXEL) [Suspect]
     Indication: BREAST CANCER
     Dosage: 35 MG/M2, INTRAVENOUS
     Route: 042
     Dates: start: 20041019

REACTIONS (4)
  - ABDOMINAL PAIN [None]
  - CAECITIS [None]
  - DIVERTICULUM [None]
  - LARGE INTESTINE PERFORATION [None]
